FAERS Safety Report 9012186 (Version 1)
Quarter: 2013Q1

REPORT INFORMATION
  Report Type: Spontaneous
  Country: US (occurrence: US)
  Receive Date: 20130114
  Receipt Date: 20130114
  Transmission Date: 20140127
  Serious: Yes (Death)
  Sender: FDA-Public Use
  Company Number: US-009507513-1301USA004024

PATIENT
  Age: 42 Year
  Sex: Female

DRUGS (2)
  1. SINGULAIR [Suspect]
     Route: 048
  2. CALCIUM [Suspect]

REACTIONS (1)
  - Completed suicide [Fatal]
